FAERS Safety Report 6826564-6 (Version None)
Quarter: 2010Q3

REPORT INFORMATION
  Report Type: 
  Country: None (occurrence: None)
  Receive Date: 20100709
  Receipt Date: 20100708
  Transmission Date: 20110219
  Serious: Yes (Hospitalization, Other)
  Sender: FDA-Public Use
  Company Number: CA-ROXANE LABORATORIES, INC.-2010-RO-00810RO

PATIENT
  Age: 18 Month
  Sex: Female

DRUGS (4)
  1. FLUTICASONE [Suspect]
     Indication: ASTHMA
     Dosage: 500 MCG
     Route: 055
     Dates: start: 20010901, end: 20040101
  2. FLUTICASONE PROPIONATE/SALMETEROL [Suspect]
     Indication: ASTHMA
     Route: 055
     Dates: start: 20040101, end: 20071101
  3. CORTICOSTEROIDS [Suspect]
     Indication: ASTHMA
     Route: 048
  4. MONTELUKAST [Suspect]
     Indication: ASTHMA

REACTIONS (5)
  - ADRENAL SUPPRESSION [None]
  - ASTHMA [None]
  - GASTROENTERITIS [None]
  - HYPOGLYCAEMIC SEIZURE [None]
  - UPPER RESPIRATORY TRACT INFECTION [None]
